FAERS Safety Report 26190325 (Version 1)
Quarter: 2025Q4

REPORT INFORMATION
  Report Type: Report from Study
  Country: US (occurrence: US)
  Receive Date: 20251223
  Receipt Date: 20251223
  Transmission Date: 20260117
  Serious: Yes (Hospitalization)
  Sender: GILEAD
  Company Number: US-GILEAD-2025-0741905

PATIENT
  Age: 61 Year
  Sex: Female

DRUGS (37)
  1. AZTREONAM LYSINE [Suspect]
     Active Substance: AZTREONAM LYSINE
     Indication: Cystic fibrosis lung
     Dosage: INHALE ONE VIAL (75 MG)VIA NEBULIZER THREETIMES DAILY CYCLE 28 DAYSON, 28 DAYS OFF
     Route: 055
  2. ACID REDUCER [NIZATIDINE] [Concomitant]
  3. ALLERGY RELIEF [FEXOFENADINE HYDROCHLORIDE] [Concomitant]
     Dosage: 180MG
  4. ACETAMINOPHEN\CODEINE PHOSPHATE [Concomitant]
     Active Substance: ACETAMINOPHEN\CODEINE PHOSPHATE
     Dosage: 300-30MG
  5. BENTYL [Concomitant]
     Active Substance: DICYCLOMINE HYDROCHLORIDE
  6. BENZONATATE [Concomitant]
     Active Substance: BENZONATATE
  7. CALCIUM [Concomitant]
     Active Substance: CALCIUM
  8. CARAFATE [Concomitant]
     Active Substance: SUCRALFATE
  9. CREON [Concomitant]
     Active Substance: PANCRELIPASE AMYLASE\PANCRELIPASE LIPASE\PANCRELIPASE PROTEASE
  10. CRESEMBA [Concomitant]
     Active Substance: ISAVUCONAZONIUM SULFATE
  11. CYCLOBENZAPRINE [Concomitant]
     Active Substance: CYCLOBENZAPRINE
  12. ELIQUIS [Concomitant]
     Active Substance: APIXABAN
  13. FAMOTIDINE [Concomitant]
     Active Substance: FAMOTIDINE
  14. FLONASE [Concomitant]
     Active Substance: FLUTICASONE PROPIONATE
  15. LEVALBUTEROL HYDROCHLORIDE [Concomitant]
     Active Substance: LEVALBUTEROL HYDROCHLORIDE
  16. LEVAQUIN [Concomitant]
     Active Substance: LEVOFLOXACIN
  17. LORATADINE [Concomitant]
     Active Substance: LORATADINE
  18. MELATONIN [Concomitant]
     Active Substance: MELATONIN
  19. MINOCYCLINE [Concomitant]
     Active Substance: MINOCYCLINE HYDROCHLORIDE
  20. MUCINEX [Concomitant]
     Active Substance: GUAIFENESIN
  21. PANCREAZE [Concomitant]
     Active Substance: PANCRELIPASE AMYLASE\PANCRELIPASE LIPASE\PANCRELIPASE PROTEASE
  22. PANTOPRAZOLE [Concomitant]
     Active Substance: PANTOPRAZOLE
  23. PERCOCET [Concomitant]
     Active Substance: ACETAMINOPHEN\OXYCODONE HYDROCHLORIDE
  24. PREDNISONE [Concomitant]
     Active Substance: PREDNISONE
  25. PROMETHAZINE [Concomitant]
     Active Substance: PROMETHAZINE HYDROCHLORIDE
  26. SODIUM CHLORIDE [Concomitant]
     Active Substance: SODIUM CHLORIDE
  27. SEROQUEL [Concomitant]
     Active Substance: QUETIAPINE FUMARATE
  28. SERTRALINE [Concomitant]
     Active Substance: SERTRALINE HYDROCHLORIDE
  29. SODIUM CHLORIDE [Concomitant]
     Active Substance: SODIUM CHLORIDE
  30. TOBRAMYCIN [Concomitant]
     Active Substance: TOBRAMYCIN
  31. TOPAMAX [Concomitant]
     Active Substance: TOPIRAMATE
  32. TRAMADOL [Concomitant]
     Active Substance: TRAMADOL
  33. TRAZODONE [Concomitant]
     Active Substance: TRAZODONE HYDROCHLORIDE
  34. TRIKAFTA [Concomitant]
     Active Substance: ELEXACAFTOR\IVACAFTOR\TEZACAFTOR
  35. URSODIOL [Concomitant]
     Active Substance: URSODIOL
  36. XIFAXAN [Concomitant]
     Active Substance: RIFAXIMIN
  37. ZOLOFT [Concomitant]
     Active Substance: SERTRALINE HYDROCHLORIDE

REACTIONS (1)
  - Cystic fibrosis respiratory infection suppression [Unknown]
